FAERS Safety Report 9605836 (Version 3)
Quarter: 2014Q1

REPORT INFORMATION
  Report Type: Spontaneous
  Country: US (occurrence: US)
  Receive Date: 20131008
  Receipt Date: 20140227
  Transmission Date: 20141002
  Serious: Yes (Hospitalization, Other)
  Sender: FDA-Public Use
  Company Number: US-CELGENEUS-163-21880-13060971

PATIENT
  Age: 84 Year
  Sex: Female
  Weight: 61.11 kg

DRUGS (32)
  1. REVLIMID [Suspect]
     Indication: MYELODYSPLASTIC SYNDROME
     Dosage: 5 MILLIGRAM
     Route: 048
     Dates: start: 20130415, end: 201305
  2. REVLIMID [Suspect]
     Dosage: 5 MILLIGRAM
     Route: 048
     Dates: start: 201305, end: 20130529
  3. RED BLOOD CELLS [Concomitant]
     Indication: ANAEMIA
     Dosage: 2 UNITS
     Route: 041
     Dates: start: 201304, end: 201304
  4. RED BLOOD CELLS [Concomitant]
     Dosage: 2 UNITS
     Route: 041
     Dates: start: 20130508, end: 20130508
  5. RED BLOOD CELLS [Concomitant]
     Dosage: 2 UNITS
     Route: 041
     Dates: start: 20130509, end: 20130509
  6. TAMOXIFEN [Concomitant]
     Indication: FALLOPIAN TUBE CANCER
     Dosage: 20 MILLIGRAM
     Route: 065
  7. TAMOXIFEN [Concomitant]
     Indication: BREAST CANCER
  8. LISINOPRIL [Concomitant]
     Indication: PRODUCT USED FOR UNKNOWN INDICATION
     Dosage: 10 MILLIGRAM
     Route: 065
  9. TOPROL XL [Concomitant]
     Indication: PRODUCT USED FOR UNKNOWN INDICATION
     Dosage: 100 MILLIGRAM
     Route: 048
  10. FLAGYL [Concomitant]
     Indication: PRODUCT USED FOR UNKNOWN INDICATION
     Dosage: 1500 MILLIGRAM
     Route: 065
  11. CYCLOBENZAPRINE [Concomitant]
     Indication: PRODUCT USED FOR UNKNOWN INDICATION
     Dosage: 30 MILLIGRAM
     Route: 065
  12. PROTONIX [Concomitant]
     Indication: PRODUCT USED FOR UNKNOWN INDICATION
     Dosage: 40 MILLIGRAM
     Route: 065
  13. TRICOR [Concomitant]
     Indication: PRODUCT USED FOR UNKNOWN INDICATION
     Dosage: 145 MILLIGRAM
     Route: 065
  14. WELCHOL [Concomitant]
     Indication: PRODUCT USED FOR UNKNOWN INDICATION
     Dosage: 3750 MILLIGRAM
     Route: 065
  15. PREDNISONE [Concomitant]
     Indication: PRODUCT USED FOR UNKNOWN INDICATION
     Dosage: 10 MILLIGRAM
     Route: 065
  16. RESTASIS [Concomitant]
     Indication: PRODUCT USED FOR UNKNOWN INDICATION
     Route: 047
  17. VITAMIN SUPPLEMENTS [Concomitant]
     Indication: SUPPLEMENTATION THERAPY
     Route: 065
  18. NORMAL SALINE [Concomitant]
     Indication: PRODUCT USED FOR UNKNOWN INDICATION
     Route: 041
     Dates: start: 20130510
  19. METHYLPREDNISOLONE [Concomitant]
     Indication: PRODUCT USED FOR UNKNOWN INDICATION
     Route: 065
     Dates: start: 20130510
  20. TRANSFUSION [Concomitant]
     Indication: PRODUCT USED FOR UNKNOWN INDICATION
     Route: 041
     Dates: start: 201301
  21. PROCRIT [Concomitant]
     Indication: ANAEMIA
     Route: 065
  22. ARANESP [Concomitant]
     Indication: ANAEMIA
     Route: 065
  23. ASPIRIN [Concomitant]
     Indication: PRODUCT USED FOR UNKNOWN INDICATION
     Dosage: 81 MILLIGRAM
     Route: 065
  24. CALTRATE [Concomitant]
     Indication: PRODUCT USED FOR UNKNOWN INDICATION
     Dosage: 600 MILLIGRAM
     Route: 065
  25. LASIX [Concomitant]
     Indication: PRODUCT USED FOR UNKNOWN INDICATION
     Dosage: 40 MILLIGRAM
     Route: 048
  26. MAGNESIUM OXIDE [Concomitant]
     Indication: PRODUCT USED FOR UNKNOWN INDICATION
     Dosage: 400 MILLIGRAM
     Route: 065
  27. CYCLOSPORINE [Concomitant]
     Indication: PRODUCT USED FOR UNKNOWN INDICATION
     Dosage: 2 DROPS
     Route: 065
  28. FLORASTOR [Concomitant]
     Indication: PRODUCT USED FOR UNKNOWN INDICATION
     Dosage: 200 MILLIGRAM
     Route: 048
  29. MULTIVITAMINS [Concomitant]
     Indication: PRODUCT USED FOR UNKNOWN INDICATION
     Dosage: 1 TABLET
     Route: 048
  30. TYLENOL [Concomitant]
     Indication: PRODUCT USED FOR UNKNOWN INDICATION
     Route: 065
  31. VALIUM [Concomitant]
     Indication: PRODUCT USED FOR UNKNOWN INDICATION
     Route: 065
  32. METOPROLOL SUCCINATE [Concomitant]
     Indication: PRODUCT USED FOR UNKNOWN INDICATION
     Dosage: 100 MILLIGRAM
     Route: 048

REACTIONS (6)
  - Fallopian tube cancer metastatic [Unknown]
  - Cardiac failure congestive [Unknown]
  - Haemoglobin decreased [Unknown]
  - Platelet count decreased [Unknown]
  - Fatigue [Not Recovered/Not Resolved]
  - Rash erythematous [Not Recovered/Not Resolved]
